FAERS Safety Report 16685126 (Version 1)
Quarter: 2019Q3

REPORT INFORMATION
  Report Type: Report from Study
  Country: US (occurrence: US)
  Receive Date: 20190808
  Receipt Date: 20190808
  Transmission Date: 20191004
  Serious: Yes (Death, Other)
  Sender: FDA-Public Use
  Company Number: US-GILEAD-2019-0422679

PATIENT
  Sex: Male

DRUGS (2)
  1. AZTREONAM LYSINE [Suspect]
     Active Substance: AZTREONAM LYSINE
     Indication: PRODUCT USED FOR UNKNOWN INDICATION
     Dosage: 75 MG, TID
     Route: 055
     Dates: start: 20190313
  2. PREVYMIS [Suspect]
     Active Substance: LETERMOVIR
     Indication: LUNG TRANSPLANT
     Dosage: 480 MG, QD
     Route: 065
     Dates: start: 20190615

REACTIONS (1)
  - Death [Fatal]
